FAERS Safety Report 13800363 (Version 1)
Quarter: 2017Q3

REPORT INFORMATION
  Report Type: Spontaneous
  Country: US (occurrence: US)
  Receive Date: 20170727
  Receipt Date: 20170727
  Transmission Date: 20171127
  Serious: No
  Sender: FDA-Public Use
  Company Number: US-GLAXOSMITHKLINE-US2017115743

PATIENT
  Age: 64 Year
  Sex: Female

DRUGS (1)
  1. NUCALA [Suspect]
     Active Substance: MEPOLIZUMAB
     Indication: ASTHMA
     Dosage: 1000 MG, CYC
     Route: 042

REACTIONS (6)
  - Pruritus [Recovered/Resolved]
  - Sneezing [Recovered/Resolved]
  - Rash [Recovered/Resolved]
  - Abdominal discomfort [Recovered/Resolved]
  - Crying [Recovered/Resolved]
  - Cough [Recovered/Resolved]

NARRATIVE: CASE EVENT DATE: 20170712
